FAERS Safety Report 5701717-9 (Version None)
Quarter: 2008Q2

REPORT INFORMATION
  Report Type: 
  Country: None (occurrence: None)
  Receive Date: 20080409
  Receipt Date: 20080409
  Transmission Date: 20081010
  Serious: No
  Sender: FDA-Public Use
  Company Number: None

PATIENT
  Sex: Female
  Weight: 82.5547 kg

DRUGS (1)
  1. CRESTOR [Suspect]
     Indication: BLOOD CHOLESTEROL INCREASED
     Dosage: 1/2 TABLET EVERY OTHER DAY PO
     Route: 048
     Dates: start: 20080323, end: 20080407

REACTIONS (7)
  - ABDOMINAL PAIN LOWER [None]
  - ASTHENIA [None]
  - BALANCE DISORDER [None]
  - GAIT DISTURBANCE [None]
  - LETHARGY [None]
  - LIMB INJURY [None]
  - MYALGIA [None]
